FAERS Safety Report 19268967 (Version 1)
Quarter: 2021Q2

REPORT INFORMATION
  Report Type: Spontaneous
  Country: US (occurrence: US)
  Receive Date: 20210517
  Receipt Date: 20210517
  Transmission Date: 20210717
  Serious: Yes (Hospitalization)
  Sender: FDA-Public Use
  Company Number: None

PATIENT
  Sex: Male

DRUGS (1)
  1. WINRHO [Suspect]
     Active Substance: HUMAN RHO(D) IMMUNE GLOBULIN
     Indication: CONGENITAL THROMBOCYTOPENIA
     Dosage: OTHER ROUTE:IV ?5340 UNITS MONTYLY IV?
     Route: 042
     Dates: start: 20180215

REACTIONS (1)
  - Hospitalisation [None]
